FAERS Safety Report 13061420 (Version 1)
Quarter: 2016Q4

REPORT INFORMATION
  Report Type: Spontaneous
  Country: US (occurrence: US)
  Receive Date: 20161226
  Receipt Date: 20161226
  Transmission Date: 20170207
  Serious: Yes (Other)
  Sender: FDA-Public Use
  Company Number: US-SUN PHARMACEUTICAL INDUSTRIES LTD-2016US-130149

PATIENT
  Age: 23 Year
  Sex: Female

DRUGS (2)
  1. IBUPROFEN. [Suspect]
     Active Substance: IBUPROFEN
     Indication: PAIN
     Dosage: UNK
     Route: 065
  2. DIPHENHYDRAMINE, HYDROCORTISONE, LIDOCAINE, NYSTATIN [Concomitant]
     Indication: PAIN
     Dosage: UNK
     Route: 065

REACTIONS (1)
  - Fixed drug eruption [Unknown]
